FAERS Safety Report 5396164-6 (Version None)
Quarter: 2007Q3

REPORT INFORMATION
  Report Type: 
  Country: None (occurrence: None)
  Receive Date: 20070725
  Receipt Date: 20070719
  Transmission Date: 20080115
  Serious: Yes (Death, Other)
  Sender: FDA-Public Use
  Company Number: PHHO2004US19134

PATIENT
  Age: 52 Year
  Sex: Male

DRUGS (14)
  1. ABACAVIR [Concomitant]
     Dosage: 300 MG, BID
     Dates: start: 20010122, end: 20010823
  2. ABACAVIR [Concomitant]
     Dosage: 300 MG, BID
     Dates: start: 20010906
  3. SUSTIVA [Concomitant]
     Dosage: 600 MG, QHS
     Dates: start: 20010122, end: 20010823
  4. SUSTIVA [Concomitant]
     Dosage: 600 MG, QHS
     Dates: start: 20010906
  5. LIPITOR [Concomitant]
     Dosage: 20 MG, QD
     Dates: start: 20020415
  6. COZAAR [Concomitant]
     Dosage: 25 MG, QD
     Dates: start: 20021209
  7. AMBIEN [Concomitant]
     Dosage: 5 MG, QHS PRN
     Dates: start: 20020916
  8. VITAMIN CAP [Concomitant]
     Dosage: 1 TAB, QD
     Dates: start: 20040426
  9. VITAMIN E [Concomitant]
     Dosage: 400 IU, QD
     Dates: start: 20040426
  10. ECOTRIN [Concomitant]
     Dosage: 81 MG, QD
     Dates: start: 20040426
  11. VIREAD [Concomitant]
     Dosage: 300 MG, QD
     Dates: start: 20020121
  12. TESTOSTERONE (ANDROGEL) [Concomitant]
     Dosage: 5 G, QD
     Dates: start: 20020415
  13. PROLEUKIN [Suspect]
     Indication: HIV INFECTION
     Dates: end: 20000301
  14. PROLEUKIN [Suspect]
     Dosage: NO TREATMENT
     Dates: start: 20000301

REACTIONS (4)
  - METASTASIS [None]
  - PROCTALGIA [None]
  - RECTAL CANCER [None]
  - RECTAL HAEMORRHAGE [None]
